FAERS Safety Report 7765947-7 (Version None)
Quarter: 2011Q3

REPORT INFORMATION
  Report Type: 
  Country: None (occurrence: None)
  Receive Date: 20110921
  Receipt Date: 20110914
  Transmission Date: 20111222
  Serious: Yes (Hospitalization)
  Sender: FDA-Public Use
  Company Number: KR-BAXTER-2011BH022483

PATIENT
  Age: 51 Year
  Sex: Female
  Weight: 77 kg

DRUGS (17)
  1. ZAROXOLYN [Concomitant]
     Indication: DIURETIC THERAPY
     Route: 048
     Dates: start: 20100903
  2. GLIMEL [Concomitant]
     Indication: DIABETES MELLITUS
     Route: 048
     Dates: start: 20100903
  3. EXTRANEAL [Suspect]
     Indication: RENAL FAILURE CHRONIC
     Route: 033
     Dates: start: 20110427
  4. NEPHVITA [Concomitant]
     Indication: VITAMIN SUPPLEMENTATION
     Route: 048
     Dates: start: 20100903
  5. CALCIUM POLYSTYRENE SULFONATE [Concomitant]
     Indication: HYPERKALAEMIA
     Route: 048
     Dates: start: 20100903
  6. RENAGEL [Concomitant]
     Route: 048
     Dates: start: 20100903
  7. ACTOS [Concomitant]
     Indication: DIABETES MELLITUS
     Route: 048
     Dates: start: 20100903
  8. ADALAT [Concomitant]
     Indication: HYPERTENSION
     Route: 048
     Dates: start: 20101202
  9. PERENTAL [Concomitant]
     Route: 048
     Dates: start: 20100903
  10. NESPO [Concomitant]
     Route: 058
     Dates: start: 20100903
  11. ATORVASTATIN [Concomitant]
     Indication: HYPERLIPIDAEMIA
     Route: 048
     Dates: start: 20100903
  12. EXTRANEAL [Suspect]
     Indication: PERITONEAL DIALYSIS
     Route: 033
     Dates: start: 20110427
  13. PHYSIOSOL IN PLASTIC CONTAINER [Suspect]
     Indication: PERITONEAL DIALYSIS
     Route: 033
     Dates: start: 20110401
  14. JANUVIA [Concomitant]
     Indication: DIABETES MELLITUS
     Route: 048
     Dates: start: 20100903
  15. PHYSIOSOL IN PLASTIC CONTAINER [Suspect]
     Indication: RENAL FAILURE CHRONIC
     Route: 033
     Dates: start: 20110401
  16. ATENOLOL [Concomitant]
     Indication: HYPERTENSION
     Route: 048
     Dates: start: 20100903
  17. FEROBA [Concomitant]
     Indication: MINERAL SUPPLEMENTATION
     Route: 048
     Dates: start: 20100903

REACTIONS (1)
  - CONTUSION [None]
